FAERS Safety Report 9931769 (Version 1)
Quarter: 2014Q1

REPORT INFORMATION
  Report Type: Spontaneous
  Country: US (occurrence: None)
  Receive Date: 20140227
  Receipt Date: 20140227
  Transmission Date: 20141002
  Serious: Yes (Hospitalization, Disabling)
  Sender: FDA-Public Use
  Company Number: None

PATIENT
  Age: 31 Year
  Sex: Female
  Weight: 54.43 kg

DRUGS (1)
  1. LEVOFLOXACIN [Suspect]
     Indication: SINUSITIS
     Dosage: 1 TABLET ONCE DAILY TAKEN BY MOUTH
     Route: 048
     Dates: start: 20140221, end: 20140222

REACTIONS (17)
  - Joint swelling [None]
  - Arthralgia [None]
  - Contusion [None]
  - Erythema [None]
  - Abasia [None]
  - Hypoaesthesia [None]
  - Hypoaesthesia [None]
  - Night sweats [None]
  - Chills [None]
  - Myalgia [None]
  - Musculoskeletal pain [None]
  - Dizziness [None]
  - Nausea [None]
  - Bedridden [None]
  - Impaired work ability [None]
  - C-reactive protein increased [None]
  - Viral infection [None]
